FAERS Safety Report 11137085 (Version 1)
Quarter: 2015Q2

REPORT INFORMATION
  Report Type: Spontaneous
  Country: FR (occurrence: FR)
  Receive Date: 20150526
  Receipt Date: 20150526
  Transmission Date: 20150821
  Serious: Yes (Hospitalization, Other)
  Sender: FDA-Public Use
  Company Number: FR-PFIZER INC-2015113121

PATIENT
  Age: 44 Year
  Sex: Female
  Weight: 57 kg

DRUGS (2)
  1. XANAX [Suspect]
     Active Substance: ALPRAZOLAM
     Indication: INSOMNIA
     Dosage: UNK
     Route: 048
     Dates: start: 20150206, end: 20150219
  2. XANAX [Suspect]
     Active Substance: ALPRAZOLAM
     Dosage: DOSE DECREASED
     Route: 048
     Dates: start: 20150220, end: 201503

REACTIONS (9)
  - Photophobia [Not Recovered/Not Resolved]
  - Insomnia [Unknown]
  - Hallucination [Not Recovered/Not Resolved]
  - Drug dependence [Unknown]
  - Muscle tightness [Not Recovered/Not Resolved]
  - Vertigo [Not Recovered/Not Resolved]
  - Drug withdrawal syndrome [Unknown]
  - Drug ineffective [Unknown]
  - Diplopia [Not Recovered/Not Resolved]

NARRATIVE: CASE EVENT DATE: 20150306
